FAERS Safety Report 8301738-6 (Version None)
Quarter: 2012Q2

REPORT INFORMATION
  Report Type: 
  Country: None (occurrence: None)
  Receive Date: 20120420
  Receipt Date: 20120411
  Transmission Date: 20120825
  Serious: Yes (Hospitalization)
  Sender: FDA-Public Use
  Company Number: US-ACTELION-A-NJ2012-62099

PATIENT

DRUGS (2)
  1. TRACLEER [Suspect]
     Indication: PULMONARY ARTERIAL HYPERTENSION
     Dosage: UNK
     Route: 048
     Dates: start: 20100805
  2. HEPARIN [Suspect]

REACTIONS (10)
  - INTESTINAL RESECTION [None]
  - ABDOMINAL DISCOMFORT [None]
  - THROMBOSIS [None]
  - NAUSEA [None]
  - CEREBROVASCULAR ACCIDENT [None]
  - DRUG HYPERSENSITIVITY [None]
  - CONFUSIONAL STATE [None]
  - VOMITING [None]
  - VOLVULUS [None]
  - VIRAL INFECTION [None]
